FAERS Safety Report 13542146 (Version 8)
Quarter: 2019Q1

REPORT INFORMATION
  Report Type: Spontaneous
  Country: AU (occurrence: AU)
  Receive Date: 20170512
  Receipt Date: 20190213
  Transmission Date: 20190417
  Serious: Yes (Life-Threatening, Hospitalization, Other)
  Sender: FDA-Public Use
  Company Number: AU-BAUSCH-BL-2017-014513

PATIENT
  Age: 15 Year
  Sex: Male
  Weight: 70 kg

DRUGS (14)
  1. METHYLENE BLUE. [Interacting]
     Active Substance: METHYLENE BLUE
     Indication: PRODUCT USED FOR UNKNOWN INDICATION
     Dosage: BOLUS
     Route: 040
  2. LITHIUM. [Suspect]
     Active Substance: LITHIUM
     Indication: OVERDOSE
     Dosage: TOTAL
     Route: 048
  3. QUETIAPINE FUMARATE. [Interacting]
     Active Substance: QUETIAPINE FUMARATE
     Indication: DEPRESSION
     Dosage: IMMEDIATE AND EXTENDED RELEASE?TOTAL
     Route: 048
  4. DESVENLAFAXINE SUCCINATE. [Interacting]
     Active Substance: DESVENLAFAXINE SUCCINATE
     Indication: OVERDOSE
     Dosage: EXTENDED RELEASE?TOTAL
     Route: 048
  5. RAMIPRIL. [Suspect]
     Active Substance: RAMIPRIL
     Indication: ESSENTIAL HYPERTENSION
     Dosage: IN TOTAL
     Route: 048
  6. PROMETHAZINE [Interacting]
     Active Substance: PROMETHAZINE\PROMETHAZINE HYDROCHLORIDE
     Indication: OVERDOSE
     Dosage: TOTAL
     Route: 048
  7. LEVETIRACETAM. [Interacting]
     Active Substance: LEVETIRACETAM
     Indication: PRODUCT USED FOR UNKNOWN INDICATION
     Route: 048
  8. VENLAFAXINE HYDROCHLORIDE. [Suspect]
     Active Substance: VENLAFAXINE HYDROCHLORIDE
     Indication: DEPRESSION
     Dosage: IMMEDIATE AND EXTENDED RELEASE,?TOTAL
     Route: 048
  9. AMLODIPINE BESILATE [Interacting]
     Active Substance: AMLODIPINE BESYLATE
     Indication: OVERDOSE
     Dosage: ONE WEEK?TOTAL
     Route: 048
  10. FLUOXETINE [Interacting]
     Active Substance: FLUOXETINE HYDROCHLORIDE
     Indication: OVERDOSE
     Dosage: TOTAL
     Route: 048
  11. METHYLENE BLUE. [Interacting]
     Active Substance: METHYLENE BLUE
     Dosage: EVERY HOUR
     Route: 042
  12. NORADRENALINE [Interacting]
     Active Substance: NOREPINEPHRINE
     Indication: BLOOD PRESSURE SYSTOLIC DECREASED
     Route: 065
  13. METHYLENE BLUE. [Interacting]
     Active Substance: METHYLENE BLUE
     Dosage: EVERY HOUR
     Route: 042
  14. NORADRENALINE [Interacting]
     Active Substance: NOREPINEPHRINE
     Route: 065

REACTIONS (8)
  - Toxicity to various agents [Recovered/Resolved]
  - Oliguria [Recovered/Resolved]
  - Drug ineffective [Unknown]
  - Shock [Recovered/Resolved]
  - Serotonin syndrome [Recovered/Resolved]
  - Overdose [Recovered/Resolved]
  - Drug interaction [Recovered/Resolved]
  - Blood creatinine increased [Recovered/Resolved]
